FAERS Safety Report 6863470-5 (Version None)
Quarter: 2010Q3

REPORT INFORMATION
  Report Type: 
  Country: None (occurrence: None)
  Receive Date: 20100719
  Receipt Date: 20100709
  Transmission Date: 20110219
  Serious: Yes (Life-Threatening, Disabling, Other)
  Sender: FDA-Public Use
  Company Number: DSA_43483_2010

PATIENT
  Sex: Female
  Weight: 54.4316 kg

DRUGS (1)
  1. XENAZINE [Suspect]
     Indication: HUNTINGTON'S DISEASE
     Dosage: (DF ORAL) (12.5 MG TID ORAL), (12.5 MG QID ORAL), (12.5 MG QD ORAL)
     Route: 048
     Dates: start: 20090201

REACTIONS (6)
  - DISEASE PROGRESSION [None]
  - DYSKINESIA [None]
  - ERYTHEMA [None]
  - HUNTINGTON'S DISEASE [None]
  - HYPOPHAGIA [None]
  - WEIGHT DECREASED [None]
